FAERS Safety Report 6635252-0 (Version None)
Quarter: 2010Q1

REPORT INFORMATION
  Report Type: 
  Country: None (occurrence: None)
  Receive Date: 20100315
  Receipt Date: 20100303
  Transmission Date: 20100710
  Serious: Yes (Other)
  Sender: FDA-Public Use
  Company Number: US-PFIZER INC-2010028296

PATIENT
  Sex: Male
  Weight: 117.91 kg

DRUGS (3)
  1. CHANTIX [Suspect]
     Indication: SMOKING CESSATION THERAPY
     Dosage: 0.5 MG, DAILY
     Route: 048
     Dates: start: 20100201, end: 20100201
  2. PAXIL [Concomitant]
     Dosage: UNK
  3. PALIPERIDONE [Concomitant]
     Dosage: UNK

REACTIONS (5)
  - ABDOMINAL PAIN UPPER [None]
  - AGITATION [None]
  - HALLUCINATION [None]
  - NAUSEA [None]
  - SCHIZOAFFECTIVE DISORDER [None]
